FAERS Safety Report 21358430 (Version 5)
Quarter: 2024Q2

REPORT INFORMATION
  Report Type: Report from Study
  Country: JP (occurrence: JP)
  Receive Date: 20220921
  Receipt Date: 20240607
  Transmission Date: 20240715
  Serious: No
  Sender: FDA-Public Use
  Company Number: JP-ASTELLAS-2022JP008924

PATIENT
  Age: 71 Year
  Sex: Male
  Weight: 60.3 kg

DRUGS (17)
  1. ENFORTUMAB VEDOTIN-EJFV [Suspect]
     Active Substance: ENFORTUMAB VEDOTIN-EJFV
     Indication: Transitional cell carcinoma
     Route: 041
     Dates: start: 20220105, end: 20220112
  2. ENFORTUMAB VEDOTIN-EJFV [Suspect]
     Active Substance: ENFORTUMAB VEDOTIN-EJFV
     Dosage: 1.00 MG/KG, UNKNOWN FREQ.
     Route: 041
     Dates: start: 20220202, end: 20220316
  3. ENFORTUMAB VEDOTIN-EJFV [Suspect]
     Active Substance: ENFORTUMAB VEDOTIN-EJFV
     Dosage: 1.00 MG/KG, UNKNOWN FREQ.
     Route: 041
     Dates: start: 20220406, end: 20220406
  4. ENFORTUMAB VEDOTIN-EJFV [Suspect]
     Active Substance: ENFORTUMAB VEDOTIN-EJFV
     Dosage: 1.00 MG/KG, UNKNOWN FREQ.
     Route: 041
     Dates: start: 20220420, end: 20220420
  5. ENFORTUMAB VEDOTIN-EJFV [Suspect]
     Active Substance: ENFORTUMAB VEDOTIN-EJFV
     Dosage: 1.00 MG/KG, UNKNOWN FREQ.
     Route: 041
     Dates: start: 20220511, end: 20220615
  6. ENFORTUMAB VEDOTIN-EJFV [Suspect]
     Active Substance: ENFORTUMAB VEDOTIN-EJFV
     Dosage: 1.00 MG/KG, UNKNOWN FREQ.
     Route: 041
     Dates: start: 20220706, end: 20220810
  7. ENFORTUMAB VEDOTIN-EJFV [Suspect]
     Active Substance: ENFORTUMAB VEDOTIN-EJFV
     Dosage: 1.00 MG/KG, UNKNOWN FREQ.
     Route: 041
     Dates: start: 20220831, end: 20220831
  8. ENFORTUMAB VEDOTIN-EJFV [Suspect]
     Active Substance: ENFORTUMAB VEDOTIN-EJFV
     Dosage: 1.00 MG/KG, UNKNOWN FREQ.
     Route: 041
     Dates: start: 20220914, end: 20220914
  9. ENFORTUMAB VEDOTIN-EJFV [Suspect]
     Active Substance: ENFORTUMAB VEDOTIN-EJFV
     Dosage: 1.00 MG/KG, UNKNOWN FREQ.
     Route: 041
     Dates: start: 20221130
  10. AMLODIPINE [Concomitant]
     Active Substance: AMLODIPINE BESYLATE
     Indication: Hypertension
     Route: 048
     Dates: start: 2021
  11. BROTIZOLAM [Concomitant]
     Active Substance: BROTIZOLAM
     Indication: Insomnia
     Dosage: 0.25 MG, ONCE DAILY
     Route: 048
     Dates: start: 2021
  12. DUTASTERIDE [Concomitant]
     Active Substance: DUTASTERIDE
     Indication: Benign prostatic hyperplasia
     Dosage: 0.5 MG, ONCE DAILY
     Route: 048
     Dates: start: 2021
  13. FEXOFENADINE HYDROCHLORIDE [Concomitant]
     Active Substance: FEXOFENADINE HYDROCHLORIDE
     Indication: Erythema
     Route: 048
     Dates: start: 20220118, end: 20220405
  14. BETAMETHASONE DIPROPIONATE [Concomitant]
     Active Substance: BETAMETHASONE DIPROPIONATE
     Indication: Erythema
     Dosage: PROPER DOSE (UNIT: G), INCREASE OR DECREASE THE DOSE ACCORDING TO SYMPTOMS
     Route: 065
     Dates: start: 20220118, end: 20220406
  15. CLOBETASOL [Concomitant]
     Active Substance: CLOBETASOL
     Indication: Erythema
     Dosage: PROPER DOSE (UNIT: G), AS APPROPRIATE
     Route: 065
     Dates: start: 20220118, end: 20220406
  16. HEPARINOID [Concomitant]
     Indication: Erythema
     Route: 065
     Dates: start: 20220125, end: 202201
  17. GARENOXACIN MESYLATE [Concomitant]
     Active Substance: GARENOXACIN MESYLATE
     Indication: White blood cell count decreased
     Route: 048
     Dates: start: 20220125, end: 20220131

REACTIONS (7)
  - Erythema [Recovered/Resolved]
  - Anaemia [Recovered/Resolved]
  - Taste disorder [Recovered/Resolved]
  - White blood cell count decreased [Recovered/Resolved]
  - Rash [Recovered/Resolved]
  - Rash [Recovered/Resolved]
  - Inappropriate schedule of product administration [Unknown]

NARRATIVE: CASE EVENT DATE: 20220113
